FAERS Safety Report 13361670 (Version 3)
Quarter: 2017Q4

REPORT INFORMATION
  Report Type: Spontaneous
  Country: DK (occurrence: DK)
  Receive Date: 20170323
  Receipt Date: 20171013
  Transmission Date: 20180320
  Serious: Yes (Life-Threatening, Hospitalization, Disabling, Other)
  Sender: FDA-Public Use
  Company Number: DK-AMGEN-DNKSP2017043931

PATIENT
  Age: 33 Year
  Sex: Male
  Weight: 56 kg

DRUGS (5)
  1. ENBREL [Suspect]
     Active Substance: ETANERCEPT
     Dosage: 50 MG, WEEKLY
     Route: 058
     Dates: start: 20160408, end: 20160429
  2. HUMIRA [Suspect]
     Active Substance: ADALIMUMAB
     Indication: PSORIASIS
     Dosage: 40 MG, (EVERY 2 WEEKS)
     Route: 058
     Dates: start: 20140101
  3. ENBREL [Suspect]
     Active Substance: ETANERCEPT
     Indication: PSORIASIS
     Dosage: 50 MG, 2X/WEEK
     Route: 058
     Dates: start: 20150914, end: 20151109
  4. STELARA [Suspect]
     Active Substance: USTEKINUMAB
     Indication: PSORIASIS
     Dosage: 45 MG, (EVERY 12 WEEKS)
     Route: 058
     Dates: start: 20150518
  5. BENEPALI [Concomitant]
     Active Substance: ETANERCEPT
     Dosage: UNK

REACTIONS (15)
  - Urinary incontinence [Not Recovered/Not Resolved]
  - Hyperreflexia [Unknown]
  - Clonus [Unknown]
  - Demyelination [Not Recovered/Not Resolved]
  - Condition aggravated [Recovering/Resolving]
  - Wheelchair user [Not Recovered/Not Resolved]
  - Abdominal discomfort [Unknown]
  - Anal incontinence [Not Recovered/Not Resolved]
  - Myelitis transverse [Recovering/Resolving]
  - Injection site reaction [Unknown]
  - Gait inability [Not Recovered/Not Resolved]
  - Hypertonia [Unknown]
  - Paraparesis [Not Recovered/Not Resolved]
  - Influenza like illness [Unknown]
  - Musculoskeletal discomfort [Unknown]

NARRATIVE: CASE EVENT DATE: 20150914
